FAERS Safety Report 8846170 (Version 2)
Quarter: 2013Q1

REPORT INFORMATION
  Report Type: Spontaneous
  Country: FR (occurrence: FR)
  Receive Date: 20121017
  Receipt Date: 20130118
  Transmission Date: 20140127
  Serious: Yes (Other)
  Sender: FDA-Public Use
  Company Number: FR-ASTRAZENECA-2012SE78678

PATIENT
  Age: 526 Month
  Sex: Female
  Weight: 80 kg

DRUGS (3)
  1. CRESTOR [Suspect]
     Route: 048
     Dates: start: 20090811, end: 201202
  2. LAXATIVE DRUG [Concomitant]
     Dosage: AS REQUIRED
  3. CERAZETTE [Concomitant]

REACTIONS (2)
  - Malaise [Recovered/Resolved]
  - Dizziness [Recovered/Resolved]
